FAERS Safety Report 4493100-1 (Version None)
Quarter: 2004Q4

REPORT INFORMATION
  Report Type: 
  Country: None (occurrence: None)
  Receive Date: 20041104
  Receipt Date: 20040824
  Transmission Date: 20050328
  Serious: Yes (Hospitalization)
  Sender: FDA-Public Use
  Company Number: JP-GLAXOSMITHKLINE-B0343704A

PATIENT
  Age: 75 Year
  Sex: Male
  Weight: 67 kg

DRUGS (11)
  1. VALTREX [Suspect]
     Indication: HERPES ZOSTER
     Dosage: 1000MG THREE TIMES PER DAY
     Route: 048
     Dates: start: 20040821, end: 20040823
  2. BASEN [Concomitant]
     Indication: DIABETES MELLITUS
     Dosage: .9MG PER DAY
     Route: 048
     Dates: start: 20020608
  3. EPADEL [Concomitant]
     Indication: ARTERIOSCLEROSIS
     Dosage: 1800MG PER DAY
     Route: 048
     Dates: start: 20040608
  4. PURSENNID [Concomitant]
     Indication: CONSTIPATION
     Dosage: 12MG PER DAY
     Route: 048
     Dates: start: 20040422
  5. MYSLEE [Concomitant]
     Indication: INSOMNIA
     Dosage: 10MG PER DAY
     Route: 048
     Dates: start: 20030904
  6. DEPAS [Concomitant]
     Indication: INSOMNIA
     Dosage: .5MG PER DAY
     Route: 048
     Dates: start: 20040522
  7. NOVORAPID [Concomitant]
     Indication: DIABETES MELLITUS
     Dosage: 30IU PER DAY
     Route: 058
     Dates: start: 20020608
  8. LANTUS [Concomitant]
     Indication: DIABETES MELLITUS
     Dosage: 16IU PER DAY
     Route: 058
     Dates: start: 20040522
  9. LORCAM [Concomitant]
     Indication: HERPES ZOSTER
     Dosage: 12MG PER DAY
     Route: 048
     Dates: start: 20040821, end: 20040823
  10. ISALON [Concomitant]
     Indication: HERPES ZOSTER
     Dosage: 300MG PER DAY
     Route: 048
     Dates: start: 20040821, end: 20040823
  11. ANDERM [Concomitant]
     Indication: HERPES ZOSTER
     Route: 061
     Dates: start: 20040821, end: 20040824

REACTIONS (16)
  - BLOOD CREATININE INCREASED [None]
  - BLOOD UREA INCREASED [None]
  - C-REACTIVE PROTEIN INCREASED [None]
  - DECREASED APPETITE [None]
  - DIZZINESS [None]
  - DYSARTHRIA [None]
  - ENCEPHALOPATHY [None]
  - GAIT DISTURBANCE [None]
  - HEADACHE [None]
  - MALAISE [None]
  - MENTAL DISORDER [None]
  - NAUSEA [None]
  - NEUROGENIC BLADDER [None]
  - PYREXIA [None]
  - RENAL FAILURE ACUTE [None]
  - VOMITING [None]
